FAERS Safety Report 10547975 (Version 1)
Quarter: 2014Q4

REPORT INFORMATION
  Report Type: Spontaneous
  Country: US (occurrence: None)
  Receive Date: 20141027
  Receipt Date: 20141027
  Transmission Date: 20150529
  Serious: No
  Sender: FDA-Public Use
  Company Number: None

PATIENT
  Age: 78 Year
  Sex: Female
  Weight: 68.2 kg

DRUGS (11)
  1. NIFEDIPINE (PROCARDIA XL) [Concomitant]
  2. MULTIVITAMIN [Concomitant]
     Active Substance: VITAMINS
  3. FAMOTIDINE (PEPCID) [Concomitant]
  4. ESTROGENS CONJUGATED (PREMARIN) [Concomitant]
  5. DEXAMETHASONE (DECADRON) [Concomitant]
  6. ASPIRIN (ECOTRIN LOW STRENGTH) [Concomitant]
  7. SIMVASTATIN (ZOCOR) [Concomitant]
  8. REVLIMID [Suspect]
     Active Substance: LENALIDOMIDE
     Indication: PLASMA CELL MYELOMA
     Dosage: 5MG  X21/28D  ORALLY
     Route: 048
     Dates: start: 200710
  9. ATENOLOL (TENORMIN) [Concomitant]
  10. ALENDRONATE (FOSAMAX) [Concomitant]
  11. CALCIUM + D [Concomitant]
     Active Substance: CALCIUM\VITAMIN D

REACTIONS (1)
  - Fatigue [None]
